FAERS Safety Report 24360260 (Version 1)
Quarter: 2024Q3

REPORT INFORMATION
  Report Type: Other
  Country: CA (occurrence: CA)
  Receive Date: 20240925
  Receipt Date: 20240925
  Transmission Date: 20241016
  Serious: Yes (Other)
  Sender: APOTEX
  Company Number: CA-APOTEX-2024AP010667

PATIENT
  Sex: Male

DRUGS (2)
  1. ROSUVASTATIN [Suspect]
     Active Substance: ROSUVASTATIN\ROSUVASTATIN CALCIUM
     Indication: Arteriosclerosis
     Dosage: 5 MILLIGRAM
     Route: 065
  2. LEQVIO [Suspect]
     Active Substance: INCLISIRAN SODIUM
     Indication: Arteriosclerosis
     Dosage: UNK
     Route: 058

REACTIONS (7)
  - Mental disorder [Unknown]
  - Product use in unapproved indication [Unknown]
  - Pain [Unknown]
  - Arthritis [Unknown]
  - Malaise [Unknown]
  - Diabetes mellitus [Unknown]
  - Hypersensitivity [Unknown]
